FAERS Safety Report 4856008-5 (Version None)
Quarter: 2005Q4

REPORT INFORMATION
  Report Type: 
  Country: None (occurrence: None)
  Receive Date: 20051216
  Receipt Date: 20050727
  Transmission Date: 20060501
  Serious: Yes (Hospitalization, Other)
  Sender: FDA-Public Use
  Company Number: PHNU2005DE02688

PATIENT
  Age: 66 Year
  Sex: Male

DRUGS (11)
  1. ZOMETA [Suspect]
     Indication: METASTASES TO BONE
     Dosage: 4 MG, QMO
     Route: 042
     Dates: start: 20050125, end: 20050629
  2. ASPIRIN [Concomitant]
     Route: 065
  3. ANAFRANIL [Concomitant]
     Indication: PAIN
     Dosage: 25 MG, QD
     Route: 048
  4. CARBIMAZOLE [Concomitant]
     Indication: ADENOMA BENIGN
     Dosage: 5 MG, QD
     Route: 065
  5. METOPROLOL [Concomitant]
     Indication: CORONARY ARTERY DISEASE
     Dosage: 0.5 DF, TID
     Route: 048
  6. FUROSEMIDE [Concomitant]
     Indication: CARDIAC FAILURE
     Dosage: 40 MG, BID
     Route: 065
  7. DIGIMERCK [Concomitant]
     Indication: CARDIAC FAILURE
     Dosage: 0.07 MG, QD
     Route: 065
  8. AMARYL [Concomitant]
     Indication: DIABETES MELLITUS
     Dosage: 1 MG, QD
     Route: 065
  9. CELLMUSTIN [Concomitant]
     Indication: PROSTATE CANCER METASTATIC
     Dosage: 280 MG, BID
     Route: 065
  10. DURAGESIC-100 [Concomitant]
     Indication: PAIN
     Dosage: 75 UG, Q72H
     Route: 062
  11. RAMIPRIL [Concomitant]
     Indication: CARDIAC FAILURE
     Dosage: 0.5 DF, QD
     Route: 065

REACTIONS (14)
  - BONE DEBRIDEMENT [None]
  - BONE DISORDER [None]
  - COMPUTERISED TOMOGRAM ABNORMAL [None]
  - DISCOMFORT [None]
  - GENERAL ANAESTHESIA [None]
  - GINGIVAL DISORDER [None]
  - HAEMATOMA [None]
  - IMPAIRED HEALING [None]
  - OSTEOMYELITIS [None]
  - OSTEONECROSIS [None]
  - PLASTIC SURGERY [None]
  - SEQUESTRECTOMY [None]
  - TOOTH EXTRACTION [None]
  - WOUND DEBRIDEMENT [None]
